FAERS Safety Report 25183593 (Version 1)
Quarter: 2025Q2

REPORT INFORMATION
  Report Type: Spontaneous
  Country: US (occurrence: US)
  Receive Date: 20250410
  Receipt Date: 20250410
  Transmission Date: 20250717
  Serious: Yes (Other)
  Sender: MYLAN
  Company Number: US-MYLANLABS-2025M1031341

PATIENT
  Age: 63 Year
  Sex: Female

DRUGS (8)
  1. DEXAMETHASONE SODIUM PHOSPHATE [Suspect]
     Active Substance: DEXAMETHASONE SODIUM PHOSPHATE
     Indication: Persistent genital arousal disorder
  2. DEXAMETHASONE SODIUM PHOSPHATE [Suspect]
     Active Substance: DEXAMETHASONE SODIUM PHOSPHATE
     Indication: Genital dysaesthesia
  3. PREGABALIN [Suspect]
     Active Substance: PREGABALIN
     Indication: Persistent genital arousal disorder
  4. PREGABALIN [Suspect]
     Active Substance: PREGABALIN
     Indication: Genital dysaesthesia
  5. LIDOCAINE [Suspect]
     Active Substance: LIDOCAINE
     Indication: Persistent genital arousal disorder
  6. LIDOCAINE [Suspect]
     Active Substance: LIDOCAINE
     Indication: Genital dysaesthesia
  7. BOTOX [Concomitant]
     Active Substance: ONABOTULINUMTOXINA
     Indication: Persistent genital arousal disorder
     Route: 065
  8. BOTOX [Concomitant]
     Active Substance: ONABOTULINUMTOXINA
     Indication: Genital dysaesthesia

REACTIONS (2)
  - Drug ineffective [Unknown]
  - Off label use [Unknown]
